FAERS Safety Report 21117941 (Version 8)
Quarter: 2023Q1

REPORT INFORMATION
  Report Type: Report from Study
  Country: US (occurrence: US)
  Receive Date: 20220722
  Receipt Date: 20230130
  Transmission Date: 20230417
  Serious: No
  Sender: FDA-Public Use
  Company Number: US-NOVARTISTESTPH-NVSC2022US165681

PATIENT
  Sex: Female

DRUGS (2)
  1. COSENTYX [Suspect]
     Active Substance: SECUKINUMAB
     Indication: Psoriasis
     Dosage: 300 MG, QW
     Route: 058
  2. COSENTYX [Suspect]
     Active Substance: SECUKINUMAB
     Indication: Psoriatic arthropathy
     Dosage: 300 MG, QMO
     Route: 058

REACTIONS (9)
  - SARS-CoV-2 test positive [Unknown]
  - Blister [Unknown]
  - Pain in extremity [Unknown]
  - Arthralgia [Unknown]
  - Skin haemorrhage [Unknown]
  - Joint swelling [Unknown]
  - Muscle spasms [Unknown]
  - Peripheral swelling [Unknown]
  - Inflammation [Unknown]
